FAERS Safety Report 16501042 (Version 1)
Quarter: 2019Q3

REPORT INFORMATION
  Report Type: Spontaneous
  Country: US (occurrence: US)
  Receive Date: 20190701
  Receipt Date: 20190701
  Transmission Date: 20191004
  Serious: Yes (Other)
  Sender: FDA-Public Use
  Company Number: US-BTG-201900112

PATIENT
  Age: 64 Year
  Sex: Female

DRUGS (1)
  1. CROFAB [Suspect]
     Active Substance: CROTALIDAE POLYVALENT IMMUNE FAB (OVINE)
     Indication: SNAKE BITE
     Dosage: 4 VIALS AT 17.00 (INITIAL CONTROL/LOADING DOSE)
     Route: 065

REACTIONS (4)
  - Skin necrosis [Unknown]
  - Peripheral swelling [Unknown]
  - Skin warm [Unknown]
  - Erythema [Unknown]
